FAERS Safety Report 12912516 (Version 2)
Quarter: 2016Q4

REPORT INFORMATION
  Report Type: Spontaneous
  Country: ZA (occurrence: ZA)
  Receive Date: 20161104
  Receipt Date: 20161220
  Transmission Date: 20170207
  Serious: No
  Sender: FDA-Public Use
  Company Number: ZA-GLENMARK PHARMACEUTICALS INC, USA.-2016GMK024796

PATIENT

DRUGS (2)
  1. EFUDIX [Concomitant]
     Active Substance: FLUOROURACIL
     Indication: PRODUCT USED FOR UNKNOWN INDICATION
     Route: 065
  2. SUPIROBAN [Suspect]
     Active Substance: MUPIROCIN
     Indication: SKIN INFECTION
     Dosage: UNK, BID
     Route: 061

REACTIONS (1)
  - Application site burn [Unknown]
